FAERS Safety Report 4319024-8 (Version None)
Quarter: 2004Q1

REPORT INFORMATION
  Report Type: 
  Country: None (occurrence: None)
  Receive Date: 20040315
  Receipt Date: 20040303
  Transmission Date: 20041129
  Serious: Yes (Other)
  Sender: FDA-Public Use
  Company Number: 2004014708

PATIENT
  Age: 46 Year
  Sex: Female

DRUGS (7)
  1. SULPERAZON (CEFOPERAZONE, SULBACTAM) [Suspect]
     Indication: URINARY TRACT INFECTION
     Dosage: 800 MG, INTRAVENOUS
     Route: 042
     Dates: start: 20040130, end: 20040209
  2. PHENYTOIN SODIUM [Concomitant]
  3. PHENOBARBITAL TAB [Concomitant]
  4. CARBAMAZEPINE [Concomitant]
  5. ZONISAMIDE (ZONISAMIDE) [Concomitant]
  6. THEOPHYLLINE [Concomitant]
  7. LEVOFLOXACIN [Concomitant]

REACTIONS (2)
  - BLOOD ALKALINE PHOSPHATASE INCREASED [None]
  - RENAL ABSCESS [None]
